FAERS Safety Report 9787519 (Version 1)
Quarter: 2013Q4

REPORT INFORMATION
  Report Type: Report from Study
  Country: US (occurrence: US)
  Receive Date: 20131230
  Receipt Date: 20131230
  Transmission Date: 20140711
  Serious: Yes (Other)
  Sender: FDA-Public Use
  Company Number: US-ROCHE-1315747

PATIENT
  Sex: Female

DRUGS (1)
  1. BONIVA [Suspect]
     Indication: SENILE OSTEOPOROSIS
     Route: 048
     Dates: start: 2009

REACTIONS (2)
  - Bladder cancer [Unknown]
  - Anaemia [Unknown]
